FAERS Safety Report 9502553 (Version 2)
Quarter: 2014Q2

REPORT INFORMATION
  Report Type: Spontaneous
  Country: FR (occurrence: FR)
  Receive Date: 20130906
  Receipt Date: 20140402
  Transmission Date: 20141212
  Serious: Yes (Hospitalization)
  Sender: FDA-Public Use
  Company Number: FR-JNJFOC-20130902117

PATIENT
  Age: 79 Year
  Sex: Male
  Weight: 77 kg

DRUGS (27)
  1. XARELTO [Suspect]
     Indication: PRODUCT USED FOR UNKNOWN INDICATION
     Route: 048
     Dates: start: 20130801, end: 20130806
  2. BENDAMUSTINE [Suspect]
     Indication: PRODUCT USED FOR UNKNOWN INDICATION
     Route: 042
     Dates: start: 20130731, end: 20130801
  3. ZOMETA [Suspect]
     Indication: PRODUCT USED FOR UNKNOWN INDICATION
     Route: 042
     Dates: start: 20130706, end: 20130706
  4. LOSARTAN [Suspect]
     Indication: PRODUCT USED FOR UNKNOWN INDICATION
     Route: 048
     Dates: end: 20130806
  5. FUROSEMIDE [Suspect]
     Indication: PRODUCT USED FOR UNKNOWN INDICATION
     Route: 048
     Dates: end: 20130816
  6. ESOMEPRAZOLE [Suspect]
     Indication: PRODUCT USED FOR UNKNOWN INDICATION
     Route: 048
     Dates: end: 20130816
  7. VOGALENE [Suspect]
     Indication: PRODUCT USED FOR UNKNOWN INDICATION
     Dosage: 1 TO 3/DAY
     Route: 048
     Dates: start: 20130802
  8. ALVERINE CITRATE, SIMETICONE [Suspect]
     Indication: PRODUCT USED FOR UNKNOWN INDICATION
     Route: 048
     Dates: end: 20130806
  9. NEULASTA [Suspect]
     Indication: PRODUCT USED FOR UNKNOWN INDICATION
     Route: 058
     Dates: start: 20130805, end: 20130805
  10. BECLOMETASONE [Suspect]
     Indication: PRODUCT USED FOR UNKNOWN INDICATION
     Route: 055
  11. BACTRIM [Concomitant]
     Route: 065
  12. LEDERFOLINE [Concomitant]
     Route: 065
  13. VALACICLOVIR [Concomitant]
     Route: 065
  14. AMIODARONE [Concomitant]
     Route: 065
  15. ESOMEPRAZOLE [Concomitant]
     Route: 065
  16. FUROSEMIDE [Concomitant]
     Route: 065
     Dates: end: 20130806
  17. TAMSULOSIN [Concomitant]
     Route: 065
  18. KALEORID [Concomitant]
     Route: 065
     Dates: end: 20130806
  19. OROCAL [Concomitant]
     Route: 066
  20. OXYCONTIN [Concomitant]
     Route: 065
  21. ALVERINE CITRATE, SIMETICONE [Concomitant]
     Route: 065
     Dates: end: 20130806
  22. SOLUPRED [Concomitant]
     Route: 065
  23. ATROVENT [Concomitant]
     Route: 065
  24. VENTOLIN [Concomitant]
     Route: 065
  25. LOSARTAN [Concomitant]
     Route: 065
     Dates: end: 20130806
  26. VOGALENE [Concomitant]
     Route: 065
  27. OMNIPAQUE [Concomitant]
     Route: 065

REACTIONS (1)
  - Renal failure acute [Recovered/Resolved]
